FAERS Safety Report 6875838-1 (Version None)
Quarter: 2010Q3

REPORT INFORMATION
  Report Type: 
  Country: None (occurrence: None)
  Receive Date: 20100727
  Receipt Date: 20070531
  Transmission Date: 20110219
  Serious: Yes (Hospitalization, Other)
  Sender: FDA-Public Use
  Company Number: US-PFIZER INC-2006143672

PATIENT
  Sex: Male

DRUGS (2)
  1. CELEBREX [Suspect]
     Indication: PAIN
     Route: 048
     Dates: start: 20021003, end: 20031209
  2. VIOXX [Suspect]
     Route: 048
     Dates: start: 20040201, end: 20040304

REACTIONS (1)
  - MYOCARDIAL INFARCTION [None]
